FAERS Safety Report 7336464-3 (Version None)
Quarter: 2011Q1

REPORT INFORMATION
  Report Type: 
  Country: None (occurrence: None)
  Receive Date: 20110307
  Receipt Date: 20110218
  Transmission Date: 20110831
  Serious: Yes (Hospitalization)
  Sender: FDA-Public Use
  Company Number: AT-NAPPMUNDI-DEU-2011-0007031

PATIENT
  Age: 22 Year
  Sex: Male
  Weight: 75 kg

DRUGS (1)
  1. SUBSTITOL RETARD 200 MG-KAPSELN [Suspect]
     Indication: PRODUCT USED FOR UNKNOWN INDICATION
     Dosage: 1000 MG, SINGLE
     Dates: start: 20100727

REACTIONS (8)
  - SOMNOLENCE [None]
  - SINUS TACHYCARDIA [None]
  - RESPIRATORY FAILURE [None]
  - OVERDOSE [None]
  - HYPERGLYCAEMIA [None]
  - COMA [None]
  - NAUSEA [None]
  - DYSPNOEA [None]
